FAERS Safety Report 15088592 (Version 2)
Quarter: 2018Q3

REPORT INFORMATION
  Report Type: Spontaneous
  Country: JP (occurrence: JP)
  Receive Date: 20180629
  Receipt Date: 20180705
  Transmission Date: 20181010
  Serious: No
  Sender: FDA-Public Use
  Company Number: JP-ASTRAZENECA-2018SE83102

PATIENT

DRUGS (1)
  1. CRESTOR [Suspect]
     Active Substance: ROSUVASTATIN CALCIUM
     Indication: ARTERIOSCLEROSIS
     Dosage: DOSE UNKNOWN
     Route: 048

REACTIONS (3)
  - Delirium [Unknown]
  - Insomnia [Unknown]
  - Blood glucose increased [Unknown]
